FAERS Safety Report 19475975 (Version 1)
Quarter: 2021Q2

REPORT INFORMATION
  Report Type: Other
  Country: CA (occurrence: CA)
  Receive Date: 20210630
  Receipt Date: 20210630
  Transmission Date: 20210717
  Serious: Yes (Other)
  Sender: FDA-Public Use
  Company Number: CA-CELLTRION INC.-2021CA008621

PATIENT

DRUGS (14)
  1. CELEBREX [Concomitant]
     Active Substance: CELECOXIB
  2. PANTOLOC [PANTOPRAZOLE] [Concomitant]
     Active Substance: PANTOPRAZOLE SODIUM
  3. LASIX [Concomitant]
     Active Substance: FUROSEMIDE
  4. LIPITOR [Concomitant]
     Active Substance: ATORVASTATIN CALCIUM
     Route: 065
  5. TELMISARTAN. [Concomitant]
     Active Substance: TELMISARTAN
  6. RITUXIMAB (UNKNOWN) [Suspect]
     Active Substance: RITUXIMAB
     Indication: RHEUMATOID ARTHRITIS
     Dosage: 1000 MG, 1 EVERY 15 DAYS
     Route: 041
  7. ACETYLSALICYLIC ACID [Concomitant]
     Active Substance: ASPIRIN
     Route: 065
  8. AVAMYS [Concomitant]
     Active Substance: FLUTICASONE FUROATE
  9. ISOSORBIDE MONONITRATE. [Concomitant]
     Active Substance: ISOSORBIDE MONONITRATE
  10. PREDNISONE. [Concomitant]
     Active Substance: PREDNISONE
  11. AMLODIPINE BESILATE [Concomitant]
     Active Substance: AMLODIPINE BESYLATE
  12. CITALOPRAM [Concomitant]
     Active Substance: CITALOPRAM HYDROBROMIDE
  13. EZETIMIBE. [Concomitant]
     Active Substance: EZETIMIBE
  14. METHOTREXATE. [Concomitant]
     Active Substance: METHOTREXATE
     Dosage: 10 MG, 1 EVERY 1 WEEK
     Route: 065

REACTIONS (2)
  - Off label use [Unknown]
  - Cyst [Recovered/Resolved]
